FAERS Safety Report 17453451 (Version 1)
Quarter: 2020Q1

REPORT INFORMATION
  Report Type: Report from Study
  Country: US (occurrence: US)
  Receive Date: 20200224
  Receipt Date: 20200224
  Transmission Date: 20200409
  Serious: Yes (Other)
  Sender: FDA-Public Use
  Company Number: US-BAYER-2020-031684

PATIENT
  Sex: Female

DRUGS (1)
  1. ASPIRIN. [Suspect]
     Active Substance: ASPIRIN
     Dosage: UNK

REACTIONS (6)
  - Wheezing [None]
  - Abdominal pain [None]
  - Aspirin-exacerbated respiratory disease [None]
  - Nasal congestion [None]
  - Pruritus [None]
  - Vomiting [None]
